FAERS Safety Report 21551865 (Version 4)
Quarter: 2023Q2

REPORT INFORMATION
  Report Type: Report from Study
  Country: US (occurrence: US)
  Receive Date: 20221104
  Receipt Date: 20230531
  Transmission Date: 20230722
  Serious: Yes (Other)
  Sender: FDA-Public Use
  Company Number: US-ABBVIE-22K-163-4459285-00

PATIENT
  Sex: Female
  Weight: 59 kg

DRUGS (12)
  1. RINVOQ [Suspect]
     Active Substance: UPADACITINIB
     Indication: Rheumatoid arthritis
     Dosage: 15 MILLIGRAM
     Route: 048
     Dates: start: 202201
  2. RINVOQ [Suspect]
     Active Substance: UPADACITINIB
     Indication: Rheumatoid arthritis
     Route: 048
     Dates: start: 20220401
  3. CALCIUM [Concomitant]
     Active Substance: CALCIUM
     Indication: Mineral supplementation
  4. ISOSORBIDE [Concomitant]
     Active Substance: ISOSORBIDE
     Indication: Cardiac disorder
  5. PREDNISONE [Concomitant]
     Active Substance: PREDNISONE
     Indication: Product used for unknown indication
  6. MINERALS\VITAMINS [Concomitant]
     Active Substance: MINERALS\VITAMINS
     Indication: Supplementation therapy
  7. TRELEGY ELLIPTA [Concomitant]
     Active Substance: FLUTICASONE FUROATE\UMECLIDINIUM BROMIDE\VILANTEROL TRIFENATATE
     Indication: Asthma
  8. TYLENOL [Concomitant]
     Active Substance: ACETAMINOPHEN
     Indication: Headache
  9. CRESTOR [Concomitant]
     Active Substance: ROSUVASTATIN CALCIUM
     Indication: Blood cholesterol increased
  10. ATENOLOL [Concomitant]
     Active Substance: ATENOLOL
     Indication: Product used for unknown indication
  11. DALIRESP [Concomitant]
     Active Substance: ROFLUMILAST
     Indication: Chronic obstructive pulmonary disease
     Dosage: 500 MG
  12. VALSARTAN [Concomitant]
     Active Substance: VALSARTAN
     Indication: Product used for unknown indication

REACTIONS (1)
  - Lower limb fracture [Not Recovered/Not Resolved]
